FAERS Safety Report 5264120-4 (Version None)
Quarter: 2007Q1

REPORT INFORMATION
  Report Type: 
  Country: None (occurrence: None)
  Receive Date: 20070313
  Receipt Date: 20070302
  Transmission Date: 20070707
  Serious: Yes (Hospitalization, Other)
  Sender: FDA-Public Use
  Company Number: AR-PFIZER INC-2007009160

PATIENT
  Sex: Male
  Weight: 74 kg

DRUGS (6)
  1. ALDACTONE [Suspect]
     Indication: PLEURAL EFFUSION
     Dosage: DAILY DOSE:100MG
     Route: 048
  2. ALDACTONE [Suspect]
     Dosage: DAILY DOSE:200MG
     Route: 048
  3. CIMETIDINE HCL [Concomitant]
     Route: 048
  4. TRAPAX [Concomitant]
     Route: 048
  5. PLENACOR [Concomitant]
     Route: 048
  6. ACENOCOUMAROL [Concomitant]

REACTIONS (4)
  - DERMATITIS EXFOLIATIVE [None]
  - LYMPHOMA [None]
  - RASH MACULAR [None]
  - SKIN EXFOLIATION [None]
